FAERS Safety Report 6720146-2 (Version None)
Quarter: 2010Q2

REPORT INFORMATION
  Report Type: 
  Country: None (occurrence: None)
  Receive Date: 20100507
  Receipt Date: 20100504
  Transmission Date: 20101027
  Serious: Yes (Hospitalization)
  Sender: FDA-Public Use
  Company Number: WAES 0907FRA00101

PATIENT

DRUGS (11)
  1. CAP VORINOSTAT [Suspect]
     Indication: MYELODYSPLASTIC SYNDROME
     Dosage: 400 MG/DAILY
     Route: 048
     Dates: start: 20090722, end: 20090731
  2. CAP VORINOSTAT [Suspect]
     Indication: MYELODYSPLASTIC SYNDROME
     Dosage: 400 MG/DAILY
     Route: 048
     Dates: start: 20090908, end: 20090917
  3. CAP VORINOSTAT [Suspect]
     Indication: MYELODYSPLASTIC SYNDROME
     Dosage: 400 MG/DAILY
     Route: 048
     Dates: start: 20091006, end: 20091015
  4. CYTARABINE [Suspect]
     Indication: MYELODYSPLASTIC SYNDROME
     Dosage: SC
     Route: 058
     Dates: start: 20090707, end: 20090718
  5. CYTARABINE [Suspect]
     Indication: MYELODYSPLASTIC SYNDROME
     Dosage: SC
     Route: 058
     Dates: start: 20090824, end: 20090903
  6. CYTARABINE [Suspect]
     Indication: MYELODYSPLASTIC SYNDROME
     Dosage: SC
     Route: 058
     Dates: start: 20090922, end: 20091001
  7. AMLODIPINE BESYLATE [Concomitant]
  8. COLCHICINE + OPIUM, POWERED + TIEMO [Concomitant]
  9. FUROSEMIDE [Concomitant]
  10. VALACYCLOVIR HC1 [Concomitant]
  11. VALSARTAN [Concomitant]

REACTIONS (4)
  - BRONCHOPULMONARY ASPERGILLOSIS [None]
  - CHOLESTATIC LIVER INJURY [None]
  - FEBRILE NEUTROPENIA [None]
  - THROMBOCYTOPENIA [None]
